FAERS Safety Report 15473972 (Version 3)
Quarter: 2018Q4

REPORT INFORMATION
  Report Type: Spontaneous
  Country: US (occurrence: US)
  Receive Date: 20181008
  Receipt Date: 20181106
  Transmission Date: 20190205
  Serious: No
  Sender: FDA-Public Use
  Company Number: US-SA-2018SA274834

PATIENT
  Age: 32 Year
  Sex: Male

DRUGS (1)
  1. LANTUS [Suspect]
     Active Substance: INSULIN GLARGINE
     Indication: TYPE 1 DIABETES MELLITUS
     Dosage: 8-10 UNITS OF LANTUS AT 9PM NIGHTLY

REACTIONS (3)
  - Blood glucose decreased [Unknown]
  - Blood glucose fluctuation [Unknown]
  - Injection site pain [Unknown]
